FAERS Safety Report 16571995 (Version 1)
Quarter: 2019Q3

REPORT INFORMATION
  Report Type: Spontaneous
  Country: US (occurrence: US)
  Receive Date: 20190715
  Receipt Date: 20190715
  Transmission Date: 20191004
  Serious: No
  Sender: FDA-Public Use
  Company Number: US-PFIZER INC-2019300881

PATIENT
  Age: 55 Year
  Sex: Male
  Weight: 77.98 kg

DRUGS (1)
  1. GABAPENTIN. [Suspect]
     Active Substance: GABAPENTIN
     Dosage: UNK
     Dates: end: 20190703

REACTIONS (3)
  - Pain [Unknown]
  - Therapeutic product effect incomplete [Not Recovered/Not Resolved]
  - Hypoaesthesia [Unknown]
